FAERS Safety Report 25460309 (Version 1)
Quarter: 2025Q2

REPORT INFORMATION
  Report Type: Spontaneous
  Country: CA (occurrence: CA)
  Receive Date: 20250620
  Receipt Date: 20250620
  Transmission Date: 20250717
  Serious: Yes (Life-Threatening, Hospitalization, Other)
  Sender: PFIZER
  Company Number: CA-PFIZER INC-PV202500072301

PATIENT
  Age: 70 Year
  Sex: Male

DRUGS (3)
  1. DOCETAXEL [Suspect]
     Active Substance: DOCETAXEL
     Indication: Squamous cell carcinoma
     Dosage: 75 MG/M2, EVERY 3 WEEKS
     Route: 042
  2. CISPLATIN [Suspect]
     Active Substance: CISPLATIN
     Indication: Squamous cell carcinoma
     Dosage: 75 MG/M2, EVERY 3 WEEKS
     Route: 042
  3. CEMIPLIMAB [Suspect]
     Active Substance: CEMIPLIMAB
     Indication: Squamous cell carcinoma
     Dosage: 350 MG, EVERY 3 WEEKS (ONCE EVERY 3 WEEKS; 3 CYCLES)
     Route: 042

REACTIONS (5)
  - Febrile neutropenia [Unknown]
  - Off label use [Unknown]
  - Off label use [Unknown]
  - Product use issue [Unknown]
  - Drug effective for unapproved indication [Unknown]
